FAERS Safety Report 12931159 (Version 1)
Quarter: 2016Q4

REPORT INFORMATION
  Report Type: Report from Study
  Country: US (occurrence: US)
  Receive Date: 20161110
  Receipt Date: 20161110
  Transmission Date: 20170207
  Serious: No
  Sender: FDA-Public Use
  Company Number: US-009507513-1610USA013831

PATIENT
  Age: 34 Year
  Sex: Female

DRUGS (1)
  1. IMPLANON [Suspect]
     Active Substance: ETONOGESTREL
     Dosage: HAD IT FOR THE THREE YEAR PERIOD
     Route: 059

REACTIONS (3)
  - Oligomenorrhoea [Unknown]
  - Motion sickness [Unknown]
  - Menorrhagia [Unknown]
